FAERS Safety Report 14236732 (Version 1)
Quarter: 2017Q4

REPORT INFORMATION
  Report Type: Spontaneous
  Country: US (occurrence: US)
  Receive Date: 20171129
  Receipt Date: 20171129
  Transmission Date: 20180321
  Serious: No
  Sender: FDA-Public Use
  Company Number: US-BAYER-2017-230710

PATIENT
  Sex: Female

DRUGS (2)
  1. MIRENA [Suspect]
     Active Substance: LEVONORGESTREL
     Dosage: 20 MCG/24HR, CONT
     Route: 015
  2. MIRENA [Suspect]
     Active Substance: LEVONORGESTREL

REACTIONS (7)
  - Vomiting [None]
  - Abdominal distension [None]
  - Heart rate increased [None]
  - Migraine [None]
  - Headache [None]
  - Muscle spasms [None]
  - Abdominal pain [None]

NARRATIVE: CASE EVENT DATE: 20171127
